FAERS Safety Report 9171312 (Version 1)
Quarter: 2013Q1

REPORT INFORMATION
  Report Type: Report from Study
  Country: AU (occurrence: AU)
  Receive Date: 20130319
  Receipt Date: 20130319
  Transmission Date: 20140127
  Serious: Yes (Hospitalization)
  Sender: FDA-Public Use
  Company Number: AU-ROCHE-1201943

PATIENT
  Age: 63 Year
  Sex: Male
  Weight: 79 kg

DRUGS (5)
  1. BEVACIZUMAB [Suspect]
     Indication: RECTAL CANCER METASTATIC
     Route: 042
     Dates: start: 20130107, end: 20130211
  2. OXALIPLATIN [Suspect]
     Indication: RECTAL CANCER METASTATIC
     Route: 042
     Dates: start: 20130107, end: 20130211
  3. LEUCOVORIN [Suspect]
     Indication: RECTAL CANCER METASTATIC
     Route: 042
     Dates: start: 20130107, end: 20130211
  4. 5-FU [Suspect]
     Indication: RECTAL CANCER METASTATIC
     Route: 040
     Dates: start: 20130107, end: 20130211
  5. 5-FU [Suspect]
     Route: 042
     Dates: start: 20130107, end: 20130211

REACTIONS (1)
  - Enterocolitis [Recovered/Resolved]
